FAERS Safety Report 8843598 (Version 1)
Quarter: 2012Q4

REPORT INFORMATION
  Report Type: 
  Country: US (occurrence: US)
  Receive Date: 20121016
  Receipt Date: 20121016
  Transmission Date: 20130627
  Serious: Yes (Hospitalization)
  Sender: FDA-Public Use
  Company Number: US-MYLANLABS-2012S1020763

PATIENT
  Age: 71 Year
  Sex: Female

DRUGS (8)
  1. WARFARIN [Suspect]
     Indication: THROMBOSIS PROPHYLAXIS
     Dosage: For 15 days
     Route: 065
  2. WARFARIN [Interacting]
     Indication: THROMBOSIS PROPHYLAXIS
     Route: 065
  3. EZETIMIBE [Concomitant]
     Route: 065
  4. LISINOPRIL [Concomitant]
     Route: 065
  5. FAMOTIDINE [Concomitant]
     Route: 065
  6. MECLOZINE [Concomitant]
     Route: 065
  7. ALPRAZOLAM [Concomitant]
     Indication: ANXIETY
     Dosage: As needed
     Route: 065
  8. DIPHENHYDRAMINE [Concomitant]
     Indication: INSOMNIA
     Dosage: 50mg at bedtime as needed
     Route: 065

REACTIONS (3)
  - Drug interaction [Recovering/Resolving]
  - International normalised ratio increased [Recovering/Resolving]
  - Haemorrhage [Recovered/Resolved]
